FAERS Safety Report 8837812 (Version 1)
Quarter: 2012Q4

REPORT INFORMATION
  Report Type: 
  Country: US (occurrence: US)
  Receive Date: 20121012
  Receipt Date: 20121012
  Transmission Date: 20130627
  Serious: No
  Sender: FDA-Public Use
  Company Number: US-GLAXOSMITHKLINE-A0991461A

PATIENT
  Age: 62 Year
  Sex: Male

DRUGS (4)
  1. JALYN [Suspect]
     Indication: BENIGN PROSTATIC HYPERPLASIA
     Dosage: 1CAP Per day
     Route: 048
     Dates: start: 20120828
  2. RECTIV [Suspect]
     Indication: LACERATION
     Dosage: 1APP Twice per day
     Dates: start: 20120827
  3. AMLODIPINE [Concomitant]
  4. PRIMATENE MIST [Concomitant]

REACTIONS (6)
  - Dizziness [Not Recovered/Not Resolved]
  - Hypotension [Not Recovered/Not Resolved]
  - Rash [Unknown]
  - Oedema [Unknown]
  - Gastrointestinal disorder [Unknown]
  - Drug interaction [Unknown]
